FAERS Safety Report 25445343 (Version 2)
Quarter: 2025Q3

REPORT INFORMATION
  Report Type: Spontaneous
  Country: EU (occurrence: EU)
  Receive Date: 20250617
  Receipt Date: 20250903
  Transmission Date: 20251021
  Serious: Yes (Other)
  Sender: AUROBINDO
  Company Number: EU-AEMPS-1689697

PATIENT
  Age: 83 Year
  Sex: Female

DRUGS (17)
  1. HYDROCHLOROTHIAZIDE [Interacting]
     Active Substance: HYDROCHLOROTHIAZIDE
     Indication: Essential hypertension
     Dosage: 50 MILLIGRAM, ONCE A DAY
     Route: 048
     Dates: start: 20130615, end: 20250411
  2. HYDROCHLOROTHIAZIDE [Interacting]
     Active Substance: HYDROCHLOROTHIAZIDE
     Indication: Hypertension
  3. RAMIPRIL [Interacting]
     Active Substance: RAMIPRIL
     Indication: Product used for unknown indication
     Dosage: 10 MILLIGRAM, ONCE A DAY (10 MG, QD (10MG 28 TABLETS))
     Route: 065
  4. OMEPRAZOLE [Interacting]
     Active Substance: OMEPRAZOLE
     Indication: Product used for unknown indication
     Dosage: 20 MILLIGRAM, ONCE A DAY (20 MG, QD (20MG 28 CAPSULES))
     Route: 065
  5. PREDNISONE [Interacting]
     Active Substance: PREDNISONE
     Indication: Giant cell arteritis
     Route: 048
     Dates: start: 20250203, end: 202503
  6. PREDNISONE [Interacting]
     Active Substance: PREDNISONE
     Route: 048
     Dates: start: 20250203
  7. PREDNISONE [Interacting]
     Active Substance: PREDNISONE
     Route: 048
     Dates: start: 20250203
  8. METHOTREXATE [Interacting]
     Active Substance: METHOTREXATE
     Indication: Product used for unknown indication
     Route: 065
  9. TOCILIZUMAB [Interacting]
     Active Substance: TOCILIZUMAB
     Indication: Product used for unknown indication
     Route: 065
     Dates: start: 20250113
  10. ACETAMINOPHEN\TRAMADOL [Interacting]
     Active Substance: ACETAMINOPHEN\TRAMADOL
     Indication: Product used for unknown indication
     Dosage: 1 DOSAGE FORM, ONCE A DAY (1 DF, QD (20 FILM COATED TABLETS - 1))
     Route: 065
  11. CORTISONE ACETATE [Interacting]
     Active Substance: CORTISONE ACETATE
     Indication: Product used for unknown indication
     Route: 065
  12. CORTISONE ACETATE [Interacting]
     Active Substance: CORTISONE ACETATE
     Route: 065
  13. CORTISONE ACETATE [Interacting]
     Active Substance: CORTISONE ACETATE
     Route: 065
  14. ALENDRONATE SODIUM [Interacting]
     Active Substance: ALENDRONATE SODIUM
     Indication: Product used for unknown indication
     Dosage: 70 MILLIGRAM, EVERY WEEK (70 MG, QW(WEEKLY 70MG 4 TABLETS - 1 TABLET - 7 DAYS))
     Route: 065
  15. CALCIUM CARBONATE\CHOLECALCIFEROL [Interacting]
     Active Substance: CALCIUM CARBONATE\CHOLECALCIFEROL
     Indication: Product used for unknown indication
     Dosage: 1 DOSAGE FORM, ONCE A DAY (1 DF, QD (500MG/1000UI 30 CHEWABLE TABLETS - 1))
     Route: 065
  16. AMITRIPTYLINE HYDROCHLORIDE [Interacting]
     Active Substance: AMITRIPTYLINE HYDROCHLORIDE
     Indication: Product used for unknown indication
     Dosage: 1 DOSAGE FORM, ONCE A DAY (1 DF, QD (10MG 24 FILM COATED TABLETS - 1 TABLET -24 HOURS))
     Route: 065
  17. SIMVASTATIN [Interacting]
     Active Substance: SIMVASTATIN
     Indication: Product used for unknown indication
     Dosage: 20 MILLIGRAM, ONCE A DAY
     Route: 065

REACTIONS (1)
  - Hypokalaemia [Recovering/Resolving]

NARRATIVE: CASE EVENT DATE: 20250411
